FAERS Safety Report 25640614 (Version 1)
Quarter: 2025Q3

REPORT INFORMATION
  Report Type: Spontaneous
  Country: CL (occurrence: CL)
  Receive Date: 20250804
  Receipt Date: 20250804
  Transmission Date: 20251021
  Serious: Yes (Death, Hospitalization, Other)
  Sender: PHARMOBEDIENT CONSULTING, LLC
  Company Number: CL-Pharmobedient-000034

PATIENT
  Sex: Male

DRUGS (3)
  1. LINEZOLID [Suspect]
     Active Substance: LINEZOLID
     Indication: Disseminated tuberculosis
  2. MEROPENEM [Concomitant]
     Active Substance: MEROPENEM
     Indication: Disseminated tuberculosis
  3. LEVOFLOXACIN [Concomitant]
     Active Substance: LEVOFLOXACIN
     Indication: Disseminated tuberculosis

REACTIONS (2)
  - Anaemia [Fatal]
  - Upper gastrointestinal haemorrhage [Fatal]
